FAERS Safety Report 20313165 (Version 1)
Quarter: 2022Q1

REPORT INFORMATION
  Report Type: Spontaneous
  Country: TW (occurrence: TW)
  Receive Date: 20220110
  Receipt Date: 20220110
  Transmission Date: 20220423
  Serious: Yes (Other)
  Sender: FDA-Public Use
  Company Number: TW-NOVARTISPH-NVSC2022TW002969

PATIENT
  Age: 81 Year
  Sex: Male

DRUGS (5)
  1. METHOTREXATE [Suspect]
     Active Substance: METHOTREXATE
     Indication: Squamous cell carcinoma
     Dosage: 50 MG, Q24H
     Route: 041
  2. METHOTREXATE [Suspect]
     Active Substance: METHOTREXATE
     Dosage: 50 MG, (EVERY 1 OR 2 WEEKS)(INTRA-ARTERIAL)
     Route: 041
  3. METHOTREXATE [Suspect]
     Active Substance: METHOTREXATE
     Dosage: UNK(ANOTHER COURSE OF CONTINUOUS INFUSION)
     Route: 041
  4. LEUCOVORIN [Suspect]
     Active Substance: LEUCOVORIN
     Indication: Squamous cell carcinoma
     Dosage: 15 MG, Q12H
     Route: 030
  5. LEUCOVORIN [Suspect]
     Active Substance: LEUCOVORIN
     Dosage: UNK UNK, UNKNOWN(ANOTHER COURSE OF CONTINUOUS INFUSION)
     Route: 041

REACTIONS (3)
  - Thrombocytopenia [Unknown]
  - Hepatic enzyme abnormal [Unknown]
  - Product use in unapproved indication [Unknown]
